FAERS Safety Report 5386880-4 (Version None)
Quarter: 2007Q3

REPORT INFORMATION
  Report Type: 
  Country: None (occurrence: None)
  Receive Date: 20070713
  Receipt Date: 20070703
  Transmission Date: 20080115
  Serious: Yes (Hospitalization, Other)
  Sender: FDA-Public Use
  Company Number: JP-PFIZER INC-2007046721

PATIENT
  Age: 80 Year
  Sex: Male

DRUGS (23)
  1. ZITHROMAC [Suspect]
     Indication: PHARYNGITIS
     Dosage: DAILY DOSE:500MG
     Route: 048
     Dates: start: 20070529, end: 20070602
  2. BLOPRESS [Suspect]
     Dosage: DAILY DOSE:8MG
     Route: 048
  3. MAOUBUSHISAISHINTOU [Suspect]
     Dosage: TEXT:6G
     Route: 048
  4. LEFTOSE [Concomitant]
     Route: 048
  5. DASEN [Concomitant]
     Route: 048
  6. LOXONIN [Concomitant]
     Route: 048
  7. MUCOSTA [Concomitant]
     Route: 048
  8. DESYREL [Concomitant]
     Route: 048
  9. MEILAX [Concomitant]
     Route: 048
  10. ROHYPNOL [Concomitant]
     Route: 048
  11. PURSENNID [Concomitant]
     Route: 048
  12. NELBON [Concomitant]
     Route: 048
  13. AMOXAN [Concomitant]
     Route: 048
  14. TECIPUL [Concomitant]
     Route: 048
  15. CONAN [Concomitant]
     Route: 048
  16. AMLODIN [Concomitant]
     Route: 048
  17. SLOW-K [Concomitant]
     Route: 048
  18. LASIX [Concomitant]
     Route: 048
  19. ALESION [Concomitant]
     Route: 048
  20. FLUTIDE [Concomitant]
     Route: 055
  21. FLUNASE /JPN/ [Concomitant]
     Route: 055
  22. HUMALOG [Concomitant]
  23. HUMACART-N [Concomitant]

REACTIONS (1)
  - RHABDOMYOLYSIS [None]
